FAERS Safety Report 22196058 (Version 1)
Quarter: 2023Q2

REPORT INFORMATION
  Report Type: Spontaneous
  Country: US (occurrence: US)
  Receive Date: 20230411
  Receipt Date: 20230411
  Transmission Date: 20230722
  Serious: Yes (Other)
  Sender: FDA-Public Use
  Company Number: US-AMGEN-USASP2023059622

PATIENT

DRUGS (7)
  1. CARFILZOMIB [Suspect]
     Active Substance: CARFILZOMIB
     Indication: Plasma cell myeloma
     Dosage: UNK
     Route: 065
  2. LENALIDOMIDE [Suspect]
     Active Substance: LENALIDOMIDE
     Indication: Plasma cell myeloma
     Dosage: UNK
     Route: 065
  3. DEXAMETHASONE [Suspect]
     Active Substance: DEXAMETHASONE
     Indication: Plasma cell myeloma
     Dosage: UNK
     Route: 065
  4. BORTEZOMIB [Suspect]
     Active Substance: BORTEZOMIB
     Indication: Plasma cell myeloma
     Dosage: UNK
     Route: 065
  5. CYCLOPHOSPHAMIDE [Suspect]
     Active Substance: CYCLOPHOSPHAMIDE
     Indication: Plasma cell myeloma
     Dosage: UNK
     Route: 065
  6. DARATUMUMAB [Suspect]
     Active Substance: DARATUMUMAB
     Indication: Plasma cell myeloma
     Dosage: UNK
     Route: 065
  7. HYALURONIDASE [Suspect]
     Active Substance: HYALURONIDASE
     Indication: Plasma cell myeloma
     Dosage: UNK
     Route: 065

REACTIONS (21)
  - White blood cell count decreased [Unknown]
  - Thrombocytopenia [Unknown]
  - Neuropathy peripheral [Unknown]
  - Anaemia [Unknown]
  - Musculoskeletal pain [Unknown]
  - Brain fog [Unknown]
  - Fatigue [Unknown]
  - Constipation [Unknown]
  - Diarrhoea [Unknown]
  - Insomnia [Unknown]
  - Nausea [Unknown]
  - Back pain [Unknown]
  - Pain in jaw [Unknown]
  - Neck pain [Unknown]
  - Musculoskeletal chest pain [Unknown]
  - Rash [Unknown]
  - Urticaria [Unknown]
  - Abdominal distension [Unknown]
  - Anxiety [Unknown]
  - Dry mouth [Unknown]
  - Muscle spasms [Unknown]
